FAERS Safety Report 6333019-4 (Version None)
Quarter: 2009Q3

REPORT INFORMATION
  Report Type: 
  Country: None (occurrence: None)
  Receive Date: 20090828
  Receipt Date: 20090821
  Transmission Date: 20100115
  Serious: Yes (Other)
  Sender: FDA-Public Use
  Company Number: PHEH2009US09796

PATIENT
  Age: 57 Year
  Sex: Female

DRUGS (2)
  1. OCTREOTIDE ACETATE [Suspect]
     Dosage: 20 MG, MONTHLY
  2. REVLIMID [Suspect]
     Dosage: UNK

REACTIONS (8)
  - BLINDNESS [None]
  - BRAIN COMPRESSION [None]
  - CRANIAL NERVE PALSIES MULTIPLE [None]
  - DRUG INTOLERANCE [None]
  - HEADACHE [None]
  - MYELOMA RECURRENCE [None]
  - NEOPLASM PROGRESSION [None]
  - VISUAL PATHWAY DISORDER [None]
